FAERS Safety Report 5978552-X (Version None)
Quarter: 2008Q4

REPORT INFORMATION
  Report Type: 
  Country: None (occurrence: None)
  Receive Date: 20081204
  Receipt Date: 20080613
  Transmission Date: 20090506
  Serious: No
  Sender: FDA-Public Use
  Company Number: US-BAYER-200812885BCC

PATIENT
  Age: 59 Year
  Sex: Female
  Weight: 91 kg

DRUGS (1)
  1. ALEVE [Suspect]
     Indication: MYALGIA
     Route: 048

REACTIONS (1)
  - FLUID RETENTION [None]
